FAERS Safety Report 8332793-5 (Version None)
Quarter: 2012Q2

REPORT INFORMATION
  Report Type: 
  Country: None (occurrence: None)
  Receive Date: 20120503
  Receipt Date: 20120427
  Transmission Date: 20120825
  Serious: No
  Sender: FDA-Public Use
  Company Number: US-PFIZER INC-2012087206

PATIENT
  Sex: Female

DRUGS (12)
  1. LYRICA [Suspect]
     Dosage: 150 MG, 3X/DAY
     Route: 048
     Dates: start: 20111208
  2. FISH OIL [Concomitant]
     Dosage: 1 G, 3X/DAY (1G, TID)
  3. OMEPRAZOLE [Concomitant]
     Dosage: UNK, 1X/DAY (20 QD)
  4. ASPIRIN [Concomitant]
     Dosage: 81 MG, 1X/DAY (81MG QD)
  5. LEVOTHYROXINE [Concomitant]
     Dosage: 50 MG, 1X/DAY
  6. PRAVASTATIN SODIUM [Concomitant]
     Dosage: UNK, 1X/DAY (120 QD)
  7. MAGNESIUM OXIDE [Concomitant]
     Dosage: UNK, 1X/DAY (200 QD)
  8. ATENOLOL [Concomitant]
     Dosage: 25 MG, 2X/DAY
  9. CALCIUM WITH VITAMIN D [Concomitant]
     Dosage: UNK, 1X/DAY (500/200 QD)
  10. METFORMIN [Concomitant]
     Dosage: UNK, 2X/DAY (500 BID)
  11. VITAMIN E [Concomitant]
     Dosage: UNK, 1X/DAY (400 UNITS QD)
  12. VITAMIN D [Concomitant]
     Dosage: UNK, 1X/DAY (2000 IU QD)

REACTIONS (1)
  - WEIGHT INCREASED [None]
